FAERS Safety Report 24778305 (Version 1)
Quarter: 2024Q4

REPORT INFORMATION
  Report Type: Report from Study
  Country: CA (occurrence: CA)
  Receive Date: 20241226
  Receipt Date: 20241226
  Transmission Date: 20250114
  Serious: Yes (Hospitalization, Other)
  Sender: ABBVIE
  Company Number: CA-ABBVIE-6059953

PATIENT
  Age: 65 Year
  Sex: Female

DRUGS (1)
  1. RINVOQ [Suspect]
     Active Substance: UPADACITINIB
     Indication: Rheumatoid arthritis
     Route: 048
     Dates: start: 20210113

REACTIONS (10)
  - Cerebral haemorrhage [Recovered/Resolved]
  - Headache [Recovered/Resolved]
  - Fall [Recovered/Resolved]
  - Somnolence [Recovered/Resolved]
  - Confusional state [Recovered/Resolved]
  - Gaze palsy [Recovered/Resolved]
  - Speech disorder [Recovered/Resolved]
  - Injury [Unknown]
  - Transient ischaemic attack [Unknown]
  - Middle cerebral artery stroke [Unknown]
